FAERS Safety Report 21028641 (Version 1)
Quarter: 2022Q2

REPORT INFORMATION
  Report Type: Report from Study
  Country: IT (occurrence: IT)
  Receive Date: 20220630
  Receipt Date: 20220630
  Transmission Date: 20220721
  Serious: Yes (Hospitalization, Other)
  Sender: FDA-Public Use
  Company Number: IT-CELGENE-ITA-20200303640

PATIENT
  Age: 69 Year
  Sex: Male
  Weight: 72 kg

DRUGS (8)
  1. AMLODIPINE [Concomitant]
     Active Substance: AMLODIPINE BESYLATE
     Indication: Hypertension
     Dosage: 10 MG?ONGOING
     Route: 048
     Dates: start: 20200306
  2. PANTOPRAZOLE [Concomitant]
     Active Substance: PANTOPRAZOLE
     Indication: Gastritis prophylaxis
     Dosage: 20 MG
     Route: 048
     Dates: start: 20170713
  3. URSODIOL [Concomitant]
     Active Substance: URSODIOL
     Indication: Cholelithiasis
     Dosage: 300 MG
     Route: 048
     Dates: start: 20200117, end: 20200227
  4. URSODIOL [Concomitant]
     Active Substance: URSODIOL
     Dosage: 150 MG?ONGOING
     Route: 048
     Dates: start: 20200228
  5. VALSARTAN [Concomitant]
     Active Substance: VALSARTAN
     Indication: Hypertension
     Dosage: 160 MG?ONGOING
     Route: 048
     Dates: start: 20200228
  6. ACETYLSALILIC ACID [Concomitant]
     Indication: Thrombosis prophylaxis
     Dosage: FREQUENCY TEXT: INTERMITTENT?100 MG X INTERMITTENT
     Dates: start: 2010
  7. ALLOPURINOLE [Concomitant]
     Indication: Prophylaxis
     Dosage: 300 MG X 1 X 1 DAYS
     Dates: start: 20061018
  8. DANAZOLE [Concomitant]
     Indication: Myelofibrosis
     Dosage: 200 MG X 1 X 1 DAYS?ONGOING
     Dates: start: 20171207

REACTIONS (1)
  - Chronic kidney disease [Recovered/Resolved]

NARRATIVE: CASE EVENT DATE: 20200214
